FAERS Safety Report 9292834 (Version 4)
Quarter: 2013Q4

REPORT INFORMATION
  Report Type: Spontaneous
  Country: US (occurrence: US)
  Receive Date: 20130516
  Receipt Date: 20131001
  Transmission Date: 20140711
  Serious: Yes (Other)
  Sender: FDA-Public Use
  Company Number: US-FRI-1000045017

PATIENT
  Age: 41 Year
  Sex: Female

DRUGS (10)
  1. VIIBRYD [Suspect]
     Indication: DEPRESSION
     Dosage: 10 MG
     Route: 048
     Dates: start: 20130128, end: 20130203
  2. VIIBRYD [Suspect]
     Dosage: 20 MG
     Route: 048
     Dates: start: 20130204, end: 20130210
  3. VIIBRYD [Suspect]
     Dosage: 40 MG
     Route: 048
     Dates: start: 20130211, end: 2013
  4. VIIBRYD [Suspect]
     Indication: DEPRESSION
     Dosage: 20 MG
     Route: 048
     Dates: start: 2013
  5. BUSPAR [Suspect]
     Indication: ANXIETY
     Dosage: 50 MG
     Route: 048
     Dates: start: 2011
  6. WELLBUTRIN [Concomitant]
     Indication: DEPRESSION
     Dosage: 450 MG
     Route: 048
     Dates: start: 2011
  7. KLONOPIN [Concomitant]
     Indication: ANXIETY
     Dosage: 1MG
  8. KLONOPIN [Concomitant]
     Indication: CONVULSION
  9. FLAXSEED [Concomitant]
  10. VITAMIN D [Concomitant]

REACTIONS (16)
  - Suicide attempt [Recovered/Resolved]
  - Intentional overdose [Recovered/Resolved]
  - Suicidal ideation [Recovered/Resolved]
  - Fatigue [Unknown]
  - Feeling abnormal [Unknown]
  - Depression [Not Recovered/Not Resolved]
  - Anxiety [Unknown]
  - Nausea [Recovered/Resolved]
  - Migraine [Recovering/Resolving]
  - Hallucination, auditory [Recovered/Resolved]
  - Crying [Unknown]
  - Amenorrhoea [Recovered/Resolved]
  - Paraesthesia [Unknown]
  - Epileptic aura [Not Recovered/Not Resolved]
  - Panic attack [Not Recovered/Not Resolved]
  - Agitation [Not Recovered/Not Resolved]
